FAERS Safety Report 7654539-6 (Version None)
Quarter: 2011Q3

REPORT INFORMATION
  Report Type: 
  Country: None (occurrence: None)
  Receive Date: 20110803
  Receipt Date: 20110728
  Transmission Date: 20111222
  Serious: Yes (Other)
  Sender: FDA-Public Use
  Company Number: US-MERCK-1107USA03699

PATIENT
  Age: 53 Year
  Sex: Male

DRUGS (9)
  1. ETOPOSIDE [Suspect]
     Indication: T-CELL LYMPHOMA
     Route: 065
  2. ZOLINZA [Suspect]
     Indication: T-CELL LYMPHOMA
     Route: 048
  3. HYDROCORTONE [Suspect]
     Indication: T-CELL LYMPHOMA
     Route: 048
  4. METHOTREXATE [Suspect]
     Indication: T-CELL LYMPHOMA
     Route: 065
  5. DOXORUBICIN HCL [Suspect]
     Indication: T-CELL LYMPHOMA
     Route: 065
  6. PREDNISONE [Suspect]
     Indication: T-CELL LYMPHOMA
     Route: 065
  7. VINCRISTINE SULFATE [Suspect]
     Indication: T-CELL LYMPHOMA
     Route: 065
  8. CYCLOPHOSPHAMIDE [Suspect]
     Indication: T-CELL LYMPHOMA
     Route: 065
  9. BEXAROTENE [Suspect]
     Indication: T-CELL LYMPHOMA
     Route: 065

REACTIONS (2)
  - T-CELL LYMPHOMA [None]
  - DRUG INEFFECTIVE [None]
